FAERS Safety Report 8007367-6 (Version None)
Quarter: 2011Q4

REPORT INFORMATION
  Report Type: 
  Country: None (occurrence: None)
  Receive Date: 20111123
  Receipt Date: 20111007
  Transmission Date: 20120403
  Serious: No
  Sender: FDA-Public Use
  Company Number: 336761

PATIENT
  Sex: Female

DRUGS (1)
  1. VICTOZA [Suspect]
     Indication: PRODUCT USED FOR UNKNOWN INDICATION
     Dosage: SUBCUTANEOUS
     Route: 058

REACTIONS (4)
  - GASTROOESOPHAGEAL REFLUX DISEASE [None]
  - INJECTION SITE ERYTHEMA [None]
  - NAUSEA [None]
  - INJECTION SITE SWELLING [None]
